FAERS Safety Report 5515614-5 (Version None)
Quarter: 2007Q4

REPORT INFORMATION
  Report Type: 
  Country: None (occurrence: None)
  Receive Date: 20071113
  Receipt Date: 20070705
  Transmission Date: 20080405
  Serious: No
  Sender: FDA-Public Use
  Company Number: A0661907A

PATIENT
  Age: 67 Year
  Sex: Male

DRUGS (4)
  1. COREG [Suspect]
     Indication: HYPERTENSION
     Dosage: 12.5MG TWICE PER DAY
     Route: 048
     Dates: start: 20070101
  2. SOTALOL HYDROCHLORIDE [Concomitant]
  3. LISINOPRIL [Concomitant]
  4. HYDROCHLOROTHIAZIDE [Concomitant]

REACTIONS (4)
  - ASTHENIA [None]
  - DIZZINESS [None]
  - FATIGUE [None]
  - VISION BLURRED [None]
